FAERS Safety Report 25866967 (Version 2)
Quarter: 2025Q4

REPORT INFORMATION
  Report Type: Spontaneous
  Country: EU (occurrence: EU)
  Receive Date: 20251001
  Receipt Date: 20251001
  Transmission Date: 20260119
  Serious: Yes (Hospitalization)
  Sender: ACCORD
  Company Number: None

PATIENT
  Age: 63 Year
  Sex: Female
  Weight: 68 kg

DRUGS (3)
  1. CARBOPLATIN [Suspect]
     Active Substance: CARBOPLATIN
     Indication: Lung adenocarcinoma stage IV
     Dosage: CBDCA (AUC5)+PEMETREXED (500MG/M2)+PEMBROLIZUMAB (200 MG) -?INDUCTION
     Dates: start: 20240703, end: 20240726
  2. ALIMTA [Suspect]
     Active Substance: PEMETREXED DISODIUM
     Indication: Product used for unknown indication
     Dosage: CBDCA (AUC5)+PEMETREXED (500MG/M2)+PEMBROLIZUMAB (200 MG)
     Dates: start: 20250703, end: 20250726
  3. PEMBROLIZUMAB [Suspect]
     Active Substance: PEMBROLIZUMAB
     Indication: Product used for unknown indication
     Dosage: CBDCA (AUC5)+PEMETREXED (500MG/M2)+PEMBROLIZUMAB (200 MG) -
     Dates: start: 20250703, end: 20250726

REACTIONS (3)
  - Pyrexia [Unknown]
  - Oliguria [Unknown]
  - Abdominal pain [Unknown]

NARRATIVE: CASE EVENT DATE: 20250811
